FAERS Safety Report 7214908-5 (Version None)
Quarter: 2011Q1

REPORT INFORMATION
  Report Type: 
  Country: None (occurrence: None)
  Receive Date: 20110107
  Receipt Date: 20100715
  Transmission Date: 20110831
  Serious: No
  Sender: FDA-Public Use
  Company Number: A0858375A

PATIENT
  Age: 57 Year
  Sex: Female

DRUGS (6)
  1. NOVOLIN 70/30 [Concomitant]
  2. NEURONTIN [Concomitant]
  3. GABAPENTIN [Concomitant]
  4. LOVAZA [Suspect]
     Dosage: 4CAP PER DAY
     Route: 048
  5. TRILIPIX [Concomitant]
  6. LOTREL [Concomitant]

REACTIONS (2)
  - ORAL DISCOMFORT [None]
  - PRODUCT QUALITY ISSUE [None]
